FAERS Safety Report 4918370-4 (Version None)
Quarter: 2006Q1

REPORT INFORMATION
  Report Type: 
  Country: None (occurrence: None)
  Receive Date: 20060222
  Receipt Date: 20050926
  Transmission Date: 20060701
  Serious: Yes (Other)
  Sender: FDA-Public Use
  Company Number: PHEH2005US10721

PATIENT
  Age: 77 Year
  Sex: Female

DRUGS (2)
  1. AREDIA [Suspect]
  2. PREDNISONE [Concomitant]

REACTIONS (19)
  - ACTINOMYCOSIS [None]
  - ALVEOLOPLASTY [None]
  - BLOODY DISCHARGE [None]
  - BONE DEBRIDEMENT [None]
  - BONE DISORDER [None]
  - DENTAL CARIES [None]
  - FIBROSIS [None]
  - GINGIVAL PAIN [None]
  - INFLAMMATION [None]
  - MOUTH ULCERATION [None]
  - ORAL PAIN [None]
  - OSTEITIS [None]
  - OSTEOMYELITIS [None]
  - OSTEONECROSIS [None]
  - PAIN [None]
  - PURULENT DISCHARGE [None]
  - RASH [None]
  - SEQUESTRECTOMY [None]
  - TOOTH EXTRACTION [None]
